FAERS Safety Report 9498862 (Version 1)
Quarter: 2013Q3

REPORT INFORMATION
  Report Type: Spontaneous
  Country: US (occurrence: US)
  Receive Date: 20130904
  Receipt Date: 20130904
  Transmission Date: 20140515
  Serious: No
  Sender: FDA-Public Use
  Company Number: US-COVIDIEN/TYCO HEALTHCARE/MALLINCKRODT-T201303362

PATIENT
  Sex: 0

DRUGS (1)
  1. MD-GASTROVIEW [Suspect]
     Dosage: UNK, SINGLE
     Route: 042

REACTIONS (1)
  - Incorrect route of drug administration [Unknown]
